FAERS Safety Report 14665378 (Version 3)
Quarter: 2018Q2

REPORT INFORMATION
  Report Type: Spontaneous
  Country: CH (occurrence: CH)
  Receive Date: 20180321
  Receipt Date: 20180518
  Transmission Date: 20180711
  Serious: Yes (Hospitalization, Other)
  Sender: FDA-Public Use
  Company Number: CH-ASTELLAS-2018US013558

PATIENT
  Age: 96 Year
  Sex: Female

DRUGS (8)
  1. BETMIGA [Suspect]
     Active Substance: MIRABEGRON
     Indication: URINARY INCONTINENCE
     Route: 065
     Dates: start: 20160429, end: 20160530
  2. MOVICOL [Concomitant]
     Active Substance: POLYETHYLENE GLYCOL 3350\POTASSIUM CHLORIDE\SODIUM BICARBONATE\SODIUM CHLORIDE
     Indication: PRODUCT USED FOR UNKNOWN INDICATION
  3. MODURETIC 5-50 [Concomitant]
     Active Substance: AMILORIDE HYDROCHLORIDE\HYDROCHLOROTHIAZIDE
     Indication: PRODUCT USED FOR UNKNOWN INDICATION
     Dosage: 1 DF, ONCE DAILY (IN MORNING)
     Route: 065
     Dates: start: 20180106
  4. BETMIGA [Suspect]
     Active Substance: MIRABEGRON
     Dosage: UNK UNK, UNKNOWN FREQ.
     Route: 065
     Dates: start: 201801, end: 201801
  5. BETMIGA [Suspect]
     Active Substance: MIRABEGRON
     Route: 065
     Dates: start: 20160531, end: 20180106
  6. AMLODIPINE [Concomitant]
     Active Substance: AMLODIPINE BESYLATE
     Indication: PRODUCT USED FOR UNKNOWN INDICATION
     Dosage: 5 MG, ONCE DAILY (MORNING)
     Route: 065
  7. CALCIMAGON-D3 [Concomitant]
     Active Substance: CALCIUM\CHOLECALCIFEROL
     Indication: PRODUCT USED FOR UNKNOWN INDICATION
     Dosage: UNK UNK, ONCE DAILY (MORNING)
     Route: 065
  8. VITAMIN B12 [Concomitant]
     Active Substance: CYANOCOBALAMIN
     Indication: PRODUCT USED FOR UNKNOWN INDICATION
     Route: 030
     Dates: start: 20170724, end: 20171224

REACTIONS (12)
  - Urinary retention [Unknown]
  - Hypovolaemia [Recovered/Resolved]
  - Ureteric obstruction [Recovered/Resolved]
  - Bladder dilatation [Recovered/Resolved]
  - Faecalith [Recovered/Resolved]
  - Constipation [Not Recovered/Not Resolved]
  - Fall [Unknown]
  - Hyponatraemia [Recovered/Resolved]
  - General physical health deterioration [Unknown]
  - Faecaloma [Recovered/Resolved]
  - Vomiting [Recovered/Resolved]
  - Abdominal pain [Recovered/Resolved]

NARRATIVE: CASE EVENT DATE: 20180101
